FAERS Safety Report 5919041-8 (Version None)
Quarter: 2008Q4

REPORT INFORMATION
  Report Type: 
  Country: None (occurrence: None)
  Receive Date: 20081014
  Receipt Date: 20081014
  Transmission Date: 20090506
  Serious: Yes (Other)
  Sender: FDA-Public Use
  Company Number: None

PATIENT
  Age: 59 Year
  Sex: Female
  Weight: 43.5453 kg

DRUGS (5)
  1. COGENTIN [Suspect]
     Indication: MUSCLE CONTRACTIONS INVOLUNTARY
     Dosage: 0.5 MG. TWICE DAILY PO
     Route: 048
     Dates: start: 20081009, end: 20081011
  2. COGENTIN [Suspect]
     Indication: TREMOR
     Dosage: 0.5 MG. TWICE DAILY PO
     Route: 048
     Dates: start: 20081009, end: 20081011
  3. PEOVIGIL [Concomitant]
  4. PROPRANOLOL [Concomitant]
  5. SEROQUEL [Concomitant]

REACTIONS (5)
  - CONFUSIONAL STATE [None]
  - DYSPHAGIA [None]
  - HYPOAESTHESIA [None]
  - MUSCLE CONTRACTIONS INVOLUNTARY [None]
  - TREMOR [None]
